FAERS Safety Report 9189487 (Version 2)
Quarter: 2013Q2

REPORT INFORMATION
  Report Type: Spontaneous
  Country: US (occurrence: None)
  Receive Date: 20130322
  Receipt Date: 20130628
  Transmission Date: 20140414
  Serious: Yes (Hospitalization)
  Sender: FDA-Public Use
  Company Number: ACO_34797_2013

PATIENT
  Age: 53 Year
  Sex: Female

DRUGS (17)
  1. AMPYRA (DALFAMPRIDINE) TABLET, 10MG [Suspect]
     Indication: BALANCE DISORDER
     Route: 048
     Dates: start: 2011, end: 201301
  2. REBIF [Suspect]
     Indication: PRODUCT USED FOR UNKNOWN INDICATION
  3. ASPIRIN (ACETYLSALICYLIC ACID) [Concomitant]
  4. ZOLPIDEM (ZOLPIDEM TARTRATE) [Concomitant]
  5. BACLOFEN (BACLOFEN) (BACLOFEN) [Concomitant]
  6. ENABLEX (DARIFENACIN HYDROBROMIDE) [Concomitant]
  7. FLUOXETINE (FLUOXETINE HYDROCHLORIDE) [Concomitant]
  8. GABAPENTIN (GABAPENTIN) [Concomitant]
  9. LEVETIRACETAM (LEVETIRACETAM) [Concomitant]
  10. LISINOPRIL AND HYDROCHLOROTHIAZIDE (HYDROCHLOROTHIAZIDE, LISINOPRIL) [Concomitant]
  11. PRAVASTATIN SODIUM (PRAVASTATIN SODIUM) [Concomitant]
  12. TIZANIDINE (TIZANIDINE HYDROCHLORIDE) [Concomitant]
  13. VITAMIN B12 (CYANOCOBALAMIN) [Concomitant]
  14. CALCIUM (CALCIUM) [Concomitant]
  15. MULTIVITAMIN (VITAMINS NOS) [Concomitant]
  16. STOOL SOFTENER (DOCUSATE SODIUM) [Concomitant]
  17. ALL OTHER THERAPEUTIC PRODUCTS [Concomitant]

REACTIONS (5)
  - Intervertebral disc protrusion [None]
  - Fall [None]
  - Joint injury [None]
  - Influenza like illness [None]
  - Balance disorder [None]
